FAERS Safety Report 17996348 (Version 1)
Quarter: 2020Q3

REPORT INFORMATION
  Report Type: Spontaneous
  Country: US (occurrence: US)
  Receive Date: 20200708
  Receipt Date: 20200708
  Transmission Date: 20201103
  Serious: No
  Sender: FDA-Public Use
  Company Number: US-AMAG PHARMACEUTICALS, INC.-AMAG202002161

PATIENT
  Age: 32 Year
  Sex: Female

DRUGS (1)
  1. MAKENA [Suspect]
     Active Substance: HYDROXYPROGESTERONE CAPROATE
     Indication: PREMATURE LABOUR
     Dosage: 250MG/ML
     Route: 058
     Dates: start: 20200305

REACTIONS (3)
  - Pain [Unknown]
  - Kyphosis [Unknown]
  - Weight increased [Unknown]
